FAERS Safety Report 6604176-7 (Version None)
Quarter: 2010Q1

REPORT INFORMATION
  Report Type: 
  Country: None (occurrence: None)
  Receive Date: 20100226
  Receipt Date: 20090619
  Transmission Date: 20100710
  Serious: No
  Sender: FDA-Public Use
  Company Number: A0792525A

PATIENT
  Sex: Male

DRUGS (2)
  1. LAMICTAL CD [Suspect]
     Dates: start: 20081201
  2. LAMICTAL CD [Suspect]
     Dates: start: 20090101

REACTIONS (3)
  - DERMATITIS CONTACT [None]
  - PRURITUS [None]
  - RASH [None]
